FAERS Safety Report 7468430-1 (Version None)
Quarter: 2011Q2

REPORT INFORMATION
  Report Type: 
  Country: None (occurrence: None)
  Receive Date: 20110509
  Receipt Date: 20110429
  Transmission Date: 20111010
  Serious: Yes (Other)
  Sender: FDA-Public Use
  Company Number: US-ASTRAZENECA-2011SE18295

PATIENT
  Age: 70 Year
  Sex: Female

DRUGS (2)
  1. ARIMIDEX [Suspect]
     Route: 048
  2. ARIMIDEX [Suspect]
     Route: 048

REACTIONS (9)
  - HOT FLUSH [None]
  - MUSCULOSKELETAL PAIN [None]
  - FOOT DEFORMITY [None]
  - MUSCLE SPASMS [None]
  - PAIN [None]
  - HAEMORRHAGE [None]
  - OEDEMA PERIPHERAL [None]
  - MALAISE [None]
  - ARTHRALGIA [None]
